FAERS Safety Report 16042863 (Version 1)
Quarter: 2019Q2

REPORT INFORMATION
  Report Type: Spontaneous
  Country: US (occurrence: US)
  Receive Date: 20190306
  Receipt Date: 20190306
  Transmission Date: 20190711
  Serious: Yes (Life-Threatening)
  Sender: FDA-Public Use
  Company Number: None

PATIENT
  Sex: Female

DRUGS (4)
  1. AZELASTINE HYDROCHLORIDE NASAL SPRAY [Suspect]
     Active Substance: AZELASTINE HYDROCHLORIDE
     Indication: PROPHYLAXIS
     Route: 045
  2. DEXILANT [Concomitant]
     Active Substance: DEXLANSOPRAZOLE
  3. PENLAC [Concomitant]
     Active Substance: CICLOPIROX
  4. OLEPATADINE [Concomitant]

REACTIONS (6)
  - Sinusitis [None]
  - Dyspnoea [None]
  - Drug hypersensitivity [None]
  - Product substitution issue [None]
  - Swelling face [None]
  - Nasal congestion [None]
